FAERS Safety Report 14322506 (Version 2)
Quarter: 2018Q1

REPORT INFORMATION
  Report Type: Spontaneous
  Country: US (occurrence: US)
  Receive Date: 20171225
  Receipt Date: 20180216
  Transmission Date: 20180509
  Serious: Yes (Other)
  Sender: FDA-Public Use
  Company Number: US-009507513-1712USA009998

PATIENT
  Age: 22 Year
  Sex: Female
  Weight: 70.1 kg

DRUGS (2)
  1. NEXPLANON [Suspect]
     Active Substance: ETONOGESTREL
     Dosage: 1 DF, UNK
     Route: 059
     Dates: start: 20170202, end: 20171126
  2. INFLUENZA VIRUS VACCINE (UNSPECIFIED) [Suspect]
     Active Substance: INFLUENZA VIRUS VACCINE
     Indication: PROPHYLAXIS
     Dosage: ON HER RIGHT DELTOID
     Dates: start: 20171108

REACTIONS (13)
  - Exposure during pregnancy [Unknown]
  - Pregnancy with implant contraceptive [Not Recovered/Not Resolved]
  - Rhinorrhoea [Unknown]
  - Cough [Unknown]
  - Complication associated with device [Recovered/Resolved]
  - Muscle spasms [Unknown]
  - Nausea [Unknown]
  - Vomiting [Unknown]
  - Device dislocation [Recovered/Resolved]
  - Gastrointestinal pain [Unknown]
  - Breast pain [Unknown]
  - Peripheral swelling [Unknown]
  - Unintended pregnancy [Not Recovered/Not Resolved]

NARRATIVE: CASE EVENT DATE: 201710
